FAERS Safety Report 8731832 (Version 3)
Quarter: 2013Q2

REPORT INFORMATION
  Report Type: Report from Study
  Country: US (occurrence: US)
  Receive Date: 20120820
  Receipt Date: 20130614
  Transmission Date: 20140414
  Serious: Yes (Hospitalization)
  Sender: FDA-Public Use
  Company Number: US-US-EMD SERONO, INC.-7154421

PATIENT
  Sex: Male
  Weight: 109 kg

DRUGS (2)
  1. REBIF [Suspect]
     Indication: MULTIPLE SCLEROSIS
     Route: 058
     Dates: start: 20030523, end: 201205
  2. REBIF [Suspect]
     Route: 058
     Dates: start: 20120905

REACTIONS (2)
  - Myocardial infarction [Recovered/Resolved]
  - Arterial occlusive disease [Recovered/Resolved]
